FAERS Safety Report 4895533-8 (Version None)
Quarter: 2006Q1

REPORT INFORMATION
  Report Type: 
  Country: None (occurrence: None)
  Receive Date: 20060130
  Receipt Date: 20051211
  Transmission Date: 20060701
  Serious: Yes (Hospitalization)
  Sender: FDA-Public Use
  Company Number: US-SANOFI-SYNTHELABO-A03200504187

PATIENT
  Age: 67 Year
  Sex: Male

DRUGS (7)
  1. UROXATRAL [Suspect]
     Indication: BENIGN PROSTATIC HYPERPLASIA
     Route: 048
     Dates: start: 20050101, end: 20051212
  2. BENICAR [Concomitant]
     Dosage: UNK
     Route: 048
  3. LOZOL [Concomitant]
     Dosage: UNK
     Route: 065
  4. LOTREL [Concomitant]
     Dosage: UNK
     Route: 065
  5. PROBENECID [Concomitant]
     Dosage: UNK
     Route: 048
  6. COLCHICINE [Concomitant]
     Dosage: UNK
     Route: 048
  7. ASPIRIN [Concomitant]
     Dosage: UNK
     Route: 048

REACTIONS (7)
  - EPISTAXIS [None]
  - FAECES DISCOLOURED [None]
  - FULL BLOOD COUNT DECREASED [None]
  - HYPOTENSION [None]
  - NASAL CONGESTION [None]
  - SPEECH DISORDER [None]
  - STAPHYLOCOCCAL INFECTION [None]
